FAERS Safety Report 14365689 (Version 1)
Quarter: 2018Q1

REPORT INFORMATION
  Report Type: Spontaneous
  Country: JP (occurrence: JP)
  Receive Date: 20180109
  Receipt Date: 20180109
  Transmission Date: 20180509
  Serious: Yes (Other)
  Sender: FDA-Public Use
  Company Number: JP-STRIDES ARCOLAB LIMITED-2018SP000050

PATIENT

DRUGS (5)
  1. MYCOPHENOLATE MOFETIL. [Suspect]
     Active Substance: MYCOPHENOLATE MOFETIL
     Indication: NECROTISING SCLERITIS
     Dosage: 2 G, PER DAY
     Route: 065
  2. INFLIXIMAB [Suspect]
     Active Substance: INFLIXIMAB
     Indication: NECROTISING SCLERITIS
     Dosage: 5 MG/KG, AT 0, 2, 6 AND THEN EVERY 8 WEEKS
     Route: 042
  3. BETAMETHASONE. [Suspect]
     Active Substance: BETAMETHASONE
     Dosage: 1 MG, PER DAY
     Route: 048
  4. BETAMETHASONE. [Suspect]
     Active Substance: BETAMETHASONE
     Indication: NECROTISING SCLERITIS
     Dosage: UNKNOWN
     Route: 061
  5. FLUOROMETHOLONE. [Suspect]
     Active Substance: FLUOROMETHOLONE
     Indication: NECROTISING SCLERITIS
     Dosage: 0.1 %
     Route: 061

REACTIONS (9)
  - Eye inflammation [Recovered/Resolved]
  - Visual impairment [Recovered/Resolved]
  - Bacterial infection [Unknown]
  - Drug ineffective [Unknown]
  - Fungal infection [Unknown]
  - Eye pain [Unknown]
  - Off label use [Unknown]
  - Scleral thinning [Unknown]
  - Endophthalmitis [Unknown]
